FAERS Safety Report 17359850 (Version 1)
Quarter: 2020Q1

REPORT INFORMATION
  Report Type: Report from Study
  Country: None (occurrence: US)
  Receive Date: 20200203
  Receipt Date: 20200203
  Transmission Date: 20200409
  Serious: Yes (Hospitalization, Other)
  Sender: FDA-Public Use
  Company Number: US-ABBVIE-19K-163-3190640-00

PATIENT
  Age: 80 Year
  Sex: Female

DRUGS (3)
  1. SULFAMETH/TRIMETH [Suspect]
     Active Substance: SULFAMETHOXAZOLE\TRIMETHOPRIM
     Indication: URINARY TRACT INFECTION
     Dosage: 400-80MG TWICE A DAY BY MOUTH
     Route: 048
     Dates: start: 20191123, end: 201911
  2. VITAMIN C [Concomitant]
     Active Substance: ASCORBIC ACID
     Indication: PRODUCT USED FOR UNKNOWN INDICATION
  3. HUMIRA [Suspect]
     Active Substance: ADALIMUMAB
     Indication: RHEUMATOID ARTHRITIS
     Dosage: HUMIRA CITRATE FREE
     Route: 058
     Dates: start: 201905

REACTIONS (4)
  - Swelling face [Recovered/Resolved]
  - Urinary tract infection [Recovered/Resolved]
  - Drug hypersensitivity [Unknown]
  - Inflammation [Unknown]

NARRATIVE: CASE EVENT DATE: 201911
